FAERS Safety Report 6092714-5 (Version None)
Quarter: 2009Q1

REPORT INFORMATION
  Report Type: 
  Country: None (occurrence: None)
  Receive Date: 20090225
  Receipt Date: 20090216
  Transmission Date: 20090719
  Serious: Yes (Hospitalization, Other)
  Sender: FDA-Public Use
  Company Number: RO-ABBOTT-09P-135-0501248-00

PATIENT
  Sex: Female
  Weight: 100 kg

DRUGS (2)
  1. TARKA [Suspect]
     Indication: HYPERTENSION
     Dosage: 1 - 2 MG/180 MG TAB DAILY
     Route: 048
     Dates: start: 20081118, end: 20090129
  2. TERTENSIF [Concomitant]
     Indication: HYPERTENSION
     Dates: start: 20081125

REACTIONS (7)
  - ASTHENIA [None]
  - CHEST PAIN [None]
  - ELECTROCARDIOGRAM ST SEGMENT DEPRESSION [None]
  - GENERAL PHYSICAL HEALTH DETERIORATION [None]
  - HYPERTENSION [None]
  - PALPITATIONS [None]
  - TACHYCARDIA [None]
